FAERS Safety Report 23365934 (Version 1)
Quarter: 2024Q1

REPORT INFORMATION
  Report Type: Spontaneous
  Country: US (occurrence: None)
  Receive Date: 20240104
  Receipt Date: 20240104
  Transmission Date: 20240410
  Serious: Yes (Life-Threatening, Hospitalization, Other)
  Sender: FDA-Public Use
  Company Number: None

PATIENT
  Age: 49 Year
  Sex: Male
  Weight: 90 kg

DRUGS (2)
  1. TIANEPTINE [Suspect]
     Active Substance: TIANEPTINE
  2. Neptune^s fix [Concomitant]
     Dates: start: 20231224

REACTIONS (4)
  - Seizure [None]
  - Product communication issue [None]
  - Accidental overdose [None]
  - Depressed level of consciousness [None]

NARRATIVE: CASE EVENT DATE: 20231224
